FAERS Safety Report 8844513 (Version 1)
Quarter: 2012Q4

REPORT INFORMATION
  Report Type: Spontaneous
  Country: DK (occurrence: None)
  Receive Date: 20121012
  Receipt Date: 20121012
  Transmission Date: 20130627
  Serious: Yes (Other)
  Sender: FDA-Public Use
  Company Number: 2012MA012091

PATIENT
  Sex: Female

DRUGS (2)
  1. SERTRALINE HYDROCHLORIDE TABLETS [Suspect]
  2. ALCOHOL [Suspect]

REACTIONS (2)
  - Loss of consciousness [None]
  - Altered state of consciousness [None]
